FAERS Safety Report 21290058 (Version 2)
Quarter: 2022Q3

REPORT INFORMATION
  Report Type: Spontaneous
  Country: US (occurrence: US)
  Receive Date: 20220902
  Receipt Date: 20220927
  Transmission Date: 20221026
  Serious: No
  Sender: FDA-Public Use
  Company Number: US-KARYOPHARM-2022KPT000846

PATIENT

DRUGS (14)
  1. XPOVIO [Suspect]
     Active Substance: SELINEXOR
     Indication: Brain neoplasm malignant
     Dosage: 60 MG, WEEKLY
     Route: 048
     Dates: start: 202208, end: 202209
  2. AMLODIPINE [Concomitant]
     Active Substance: AMLODIPINE BESYLATE
  3. AVASTIN [Concomitant]
     Active Substance: BEVACIZUMAB
  4. CALCIUM CITRATE [Concomitant]
     Active Substance: CALCIUM CITRATE
  5. COLACE [Concomitant]
     Active Substance: DOCUSATE SODIUM
  6. DEXAMETHASONE [Concomitant]
     Active Substance: DEXAMETHASONE
  7. DRONABINOL [Concomitant]
     Active Substance: DRONABINOL
  8. FLUOXETINE [Concomitant]
     Active Substance: FLUOXETINE HYDROCHLORIDE
  9. KEYTRUDA [Concomitant]
     Active Substance: PEMBROLIZUMAB
  10. LISINOPRIL [Concomitant]
     Active Substance: LISINOPRIL
  11. METHYLPHENIDATE [Concomitant]
     Active Substance: METHYLPHENIDATE
  12. TYLENOL [Concomitant]
     Active Substance: ACETAMINOPHEN
  13. MODAFINIL [Concomitant]
     Active Substance: MODAFINIL
  14. AFLURIA NOS [Concomitant]
     Active Substance: INFLUENZA VIRUS VACCINE TRIVALENT TYPE A+B AFLURIA

REACTIONS (2)
  - Brain neoplasm malignant [Unknown]
  - Off label use [Unknown]

NARRATIVE: CASE EVENT DATE: 20220801
